FAERS Safety Report 8765699 (Version 2)
Quarter: 2012Q4

REPORT INFORMATION
  Report Type: 
  Country: US (occurrence: US)
  Receive Date: 20120903
  Receipt Date: 20120917
  Transmission Date: 20130627
  Serious: Yes (Hospitalization, Other)
  Sender: FDA-Public Use
  Company Number: PHEH2012US016992

PATIENT
  Sex: Female

DRUGS (2)
  1. TOBI [Suspect]
     Indication: CYSTIC FIBROSIS
     Dosage: 300 mg, (On and/every 28 days)
     Dates: start: 201006
  2. TOBI [Suspect]

REACTIONS (2)
  - Pericarditis [Unknown]
  - Malignant hypertension [Unknown]
